FAERS Safety Report 5694881-1 (Version None)
Quarter: 2008Q2

REPORT INFORMATION
  Report Type: 
  Country: None (occurrence: None)
  Receive Date: 20080404
  Receipt Date: 20080225
  Transmission Date: 20081010
  Serious: No
  Sender: FDA-Public Use
  Company Number: A0713053A

PATIENT
  Age: 5 Year
  Sex: Male

DRUGS (3)
  1. ADVAIR HFA [Suspect]
     Indication: DRUG USE FOR UNKNOWN INDICATION
     Route: 055
     Dates: start: 20080224
  2. XOPENEX [Concomitant]
  3. MOTRIN [Concomitant]

REACTIONS (4)
  - ADVERSE DRUG REACTION [None]
  - ANOREXIA [None]
  - PYREXIA [None]
  - SLEEP DISORDER [None]
